FAERS Safety Report 9514104 (Version 2)
Quarter: 2014Q1

REPORT INFORMATION
  Report Type: Spontaneous
  Country: US (occurrence: US)
  Receive Date: 20130910
  Receipt Date: 20140203
  Transmission Date: 20141002
  Serious: Yes (Hospitalization, Other)
  Sender: FDA-Public Use
  Company Number: US-B.I. PHARMACEUTICALS,INC./RIDGEFIELD-2013-BI-27638BP

PATIENT
  Age: 75 Year
  Sex: Male
  Weight: 68.39 kg

DRUGS (9)
  1. PRADAXA [Suspect]
     Indication: ANTICOAGULANT THERAPY
     Dosage: 300 MG
     Dates: start: 20111017
  2. PRADAXA [Suspect]
     Dosage: 150 MG
  3. CENTRUM [Concomitant]
  4. PRESER VOSOPM [Concomitant]
  5. FEROSUL [Concomitant]
  6. METOPROLOL TARTRATE [Concomitant]
     Dates: start: 20100621
  7. SIMVASTATIN [Concomitant]
     Dates: start: 20110902
  8. DIGOXIN [Concomitant]
     Dates: start: 20041016
  9. GLIMEPIRIDE [Concomitant]
     Dates: start: 20060913

REACTIONS (4)
  - Renal haemorrhage [Unknown]
  - Gastrointestinal haemorrhage [Unknown]
  - Renal impairment [Unknown]
  - Renal failure [Unknown]
